FAERS Safety Report 4485315-3 (Version None)
Quarter: 2004Q4

REPORT INFORMATION
  Report Type: 
  Country: None (occurrence: None)
  Receive Date: 20041025
  Receipt Date: 20041025
  Transmission Date: 20050328
  Serious: Yes (Other)
  Sender: FDA-Public Use
  Company Number: None

PATIENT
  Age: 33 Year
  Sex: Male

DRUGS (3)
  1. NEURONTIN [Suspect]
     Indication: HERPES ZOSTER
     Dates: start: 20041017, end: 20041020
  2. NEURONTIN [Suspect]
     Indication: PAIN
     Dates: start: 20041017, end: 20041020
  3. FAMVIR [Suspect]
     Indication: HERPES ZOSTER
     Dates: start: 20041017

REACTIONS (3)
  - DYSARTHRIA [None]
  - DYSKINESIA [None]
  - NAUSEA [None]
